FAERS Safety Report 17178973 (Version 1)
Quarter: 2019Q4

REPORT INFORMATION
  Report Type: Spontaneous
  Country: DE (occurrence: DE)
  Receive Date: 20191219
  Receipt Date: 20191219
  Transmission Date: 20200122
  Serious: Yes (Other)
  Sender: FDA-Public Use
  Company Number: DE-TEVA-2019-DE-1153285

PATIENT
  Age: 70 Year
  Sex: Female

DRUGS (4)
  1. IRINOTECAN [Concomitant]
     Active Substance: IRINOTECAN
  2. OXALIPLATIN-GRY 5 MG/ML KONZ. Z.HERSTELLUNG E. INFUSIONSLOESUNG [Suspect]
     Active Substance: OXALIPLATIN
     Indication: METASTASIS
  3. OXALIPLATIN-GRY 5 MG/ML KONZ. Z.HERSTELLUNG E. INFUSIONSLOESUNG [Suspect]
     Active Substance: OXALIPLATIN
     Indication: PANCREATIC CARCINOMA
     Dosage: GOT 8 CYCLES
     Route: 065
     Dates: start: 201909
  4. 5-FU [Concomitant]
     Active Substance: FLUOROURACIL

REACTIONS (3)
  - Polyneuropathy [Not Recovered/Not Resolved]
  - Paraesthesia [Not Recovered/Not Resolved]
  - Neuropathy peripheral [Not Recovered/Not Resolved]

NARRATIVE: CASE EVENT DATE: 2019
